FAERS Safety Report 10232836 (Version 1)
Quarter: 2014Q2

REPORT INFORMATION
  Report Type: Spontaneous
  Country: US (occurrence: None)
  Receive Date: 20140610
  Receipt Date: 20140610
  Transmission Date: 20141212
  Serious: No
  Sender: FDA-Public Use
  Company Number: C-14-047

PATIENT
  Sex: Male

DRUGS (1)
  1. OXYCODONE 10MG TABLETS (KVK-TECH) [Suspect]
     Indication: PAIN
     Dates: start: 20140412

REACTIONS (1)
  - Drug ineffective [None]
